FAERS Safety Report 24595845 (Version 1)
Quarter: 2024Q4

REPORT INFORMATION
  Report Type: Spontaneous
  Country: CR (occurrence: CR)
  Receive Date: 20241109
  Receipt Date: 20241109
  Transmission Date: 20250114
  Serious: Yes (Other)
  Sender: ROCHE
  Company Number: CR-ROCHE-10000126124

PATIENT
  Sex: Male

DRUGS (1)
  1. ERIVEDGE [Suspect]
     Active Substance: VISMODEGIB
     Indication: Basal cell carcinoma
     Dosage: DOSE WAS NOT REPORTED?FREQUENCY: TREATMENT FOR 2 MONTHS, AND THEN TAKES A BREAK FOR 2 MONTHS
     Route: 065

REACTIONS (1)
  - Basal cell carcinoma [Unknown]
